FAERS Safety Report 8902023 (Version 1)
Quarter: 2012Q4

REPORT INFORMATION
  Report Type: 
  Country: CN (occurrence: CN)
  Receive Date: 20121112
  Receipt Date: 20121112
  Transmission Date: 20130627
  Serious: Yes (Death, Other)
  Sender: FDA-Public Use
  Company Number: PHHY2012CN103469

PATIENT

DRUGS (17)
  1. CICLOSPORIN [Suspect]
     Indication: PROPHYLAXIS AGAINST GRAFT VERSUS HOST DISEASE
     Dosage: 1.5 mg/kg, from day-10 to day-2
     Route: 042
  2. CICLOSPORIN [Suspect]
     Dosage: 3 mg/kg/day, from day-1 to day 25
     Route: 042
  3. CICLOSPORIN [Suspect]
     Indication: PROPHYLAXIS AGAINST GRAFT VERSUS HOST DISEASE
     Route: 048
  4. CELLCEPT [Concomitant]
     Indication: PROPHYLAXIS AGAINST GRAFT VERSUS HOST DISEASE
     Dosage: 15 mg/kg, per day
  5. METHOTREXATE [Concomitant]
     Dosage: 15 mg/m2, on day 1
  6. METHOTREXATE [Concomitant]
     Dosage: 15 mg/m2, on day 3
  7. METHOTREXATE [Concomitant]
     Dosage: 15 mg/m2, on day 6
  8. HEPARIN [Concomitant]
     Indication: PROPHYLAXIS
  9. URSODIOL [Concomitant]
     Indication: PROPHYLAXIS
  10. IMMUNOGLOBULINS [Concomitant]
     Indication: PROPHYLAXIS
     Route: 042
  11. ITRACONAZOLE [Concomitant]
     Indication: ANTIFUNGAL PROPHYLAXIS
  12. CYCLOPHOSPHAMIDE [Concomitant]
     Indication: SURGICAL PRECONDITIONING
     Dosage: 55 mg/kg per day, from day-10 to -9
  13. FLUDARABINE [Concomitant]
     Indication: SURGICAL PRECONDITIONING
     Dosage: 40 mg/m2, per day
  14. THIOTEPA [Concomitant]
     Indication: SURGICAL PRECONDITIONING
  15. BUSULFEX [Concomitant]
     Indication: SURGICAL PRECONDITIONING
     Route: 042
  16. AZATHIOPRINE [Concomitant]
     Dosage: 3 mg/m2, UNK
  17. HYDROXYUREA [Concomitant]
     Dosage: 30 mg/m2, UNK

REACTIONS (2)
  - Venoocclusive disease [Fatal]
  - Serum ferritin increased [Unknown]
